FAERS Safety Report 9397219 (Version 1)
Quarter: 2013Q3

REPORT INFORMATION
  Report Type: Report from Study
  Country: DE (occurrence: DE)
  Receive Date: 20130712
  Receipt Date: 20130712
  Transmission Date: 20140515
  Serious: Yes (Life-Threatening, Hospitalization)
  Sender: FDA-Public Use
  Company Number: DE-ROCHE-725480

PATIENT
  Age: 30 Year
  Sex: Female
  Weight: 57 kg

DRUGS (10)
  1. PEG-INTERFERON ALFA 2A [Suspect]
     Indication: CHRONIC HEPATITIS C
     Route: 058
     Dates: start: 20100415, end: 20100806
  2. RIBAVIRIN [Suspect]
     Indication: CHRONIC HEPATITIS C
     Route: 048
     Dates: start: 20100415, end: 20100806
  3. DIAZEPAM [Concomitant]
     Indication: DRUG WITHDRAWAL MAINTENANCE THERAPY
     Route: 065
  4. MICROGYNON [Concomitant]
     Indication: CONTRACEPTION
     Route: 048
  5. BEROTEC [Concomitant]
     Indication: ASTHMA
     Dosage: IF REQUIRED
     Route: 065
  6. FOSTER [Concomitant]
     Indication: ASTHMA
     Route: 065
  7. SPIRIVA [Concomitant]
     Indication: ASTHMA
     Route: 065
  8. AERIUS [Concomitant]
     Indication: RHINITIS ALLERGIC
     Route: 048
  9. OMEPRAZOLE [Concomitant]
     Indication: GASTRITIS
     Route: 048
  10. CITALOPRAM [Concomitant]
     Indication: DEPRESSION
     Route: 048

REACTIONS (4)
  - Pneumonia [Recovering/Resolving]
  - Renal failure acute [Recovering/Resolving]
  - Sepsis [Unknown]
  - Intestinal infarction [Unknown]
